FAERS Safety Report 14245576 (Version 3)
Quarter: 2017Q4

REPORT INFORMATION
  Report Type: Spontaneous
  Country: FR (occurrence: FR)
  Receive Date: 20171203
  Receipt Date: 20171203
  Transmission Date: 20180321
  Serious: Yes (Hospitalization, Other)
  Sender: FDA-Public Use
  Company Number: FR-BAXTER-2017BAX039738

PATIENT
  Age: 44 Year
  Sex: Female

DRUGS (15)
  1. ENDOXAN 1000 MG, POUDRE POUR SOLUTIONINJECTABLE [Suspect]
     Active Substance: CYCLOPHOSPHAMIDE
     Indication: EGFR GENE OVEREXPRESSION
  2. DOXORUBICINE TEVA [Suspect]
     Active Substance: DOXORUBICIN
     Indication: EGFR GENE OVEREXPRESSION
  3. ENDOXAN 1000 MG, POUDRE POUR SOLUTIONINJECTABLE [Suspect]
     Active Substance: CYCLOPHOSPHAMIDE
     Indication: INTRADUCTAL PROLIFERATIVE BREAST LESION
     Dosage: FOUR COURSES OF AC PROTOCOL
     Route: 042
     Dates: start: 20160721, end: 20160922
  4. ENDOXAN 1000 MG, POUDRE POUR SOLUTIONINJECTABLE [Suspect]
     Active Substance: CYCLOPHOSPHAMIDE
     Indication: INVASIVE DUCTAL BREAST CARCINOMA
  5. DOCETAXEL HOSPIRA [Suspect]
     Active Substance: DOCETAXEL
     Indication: EGFR GENE OVEREXPRESSION
  6. DOXORUBICINE TEVA [Suspect]
     Active Substance: DOXORUBICIN
     Indication: INVASIVE DUCTAL BREAST CARCINOMA
  7. SEROPLEX [Concomitant]
     Active Substance: ESCITALOPRAM OXALATE
     Indication: PRODUCT USED FOR UNKNOWN INDICATION
     Dosage: FORM STRENGTH: 100 (UNITS NOT REPORTED),
     Route: 065
  8. DOCETAXEL HOSPIRA [Suspect]
     Active Substance: DOCETAXEL
     Indication: INTRADUCTAL PROLIFERATIVE BREAST LESION
     Dosage: FOUR COURSES
     Route: 042
     Dates: start: 20161013, end: 20170510
  9. XANAX [Concomitant]
     Active Substance: ALPRAZOLAM
     Indication: PRODUCT USED FOR UNKNOWN INDICATION
     Dosage: IN THE EVENING
     Route: 065
  10. HERCEPTIN [Suspect]
     Active Substance: TRASTUZUMAB
     Indication: INVASIVE DUCTAL BREAST CARCINOMA
  11. ALDACTONE [Concomitant]
     Active Substance: SPIRONOLACTONE
     Indication: PRODUCT USED FOR UNKNOWN INDICATION
     Dosage: FORM STRENGTH: 25 (UNITS NOT REPORTED), IN THE MORNING
     Route: 065
  12. DOXORUBICINE TEVA [Suspect]
     Active Substance: DOXORUBICIN
     Indication: INTRADUCTAL PROLIFERATIVE BREAST LESION
     Dosage: FOUR COURSES OF AC PROTOCOL
     Route: 042
     Dates: start: 20160721, end: 20160922
  13. DOCETAXEL HOSPIRA [Suspect]
     Active Substance: DOCETAXEL
     Indication: INVASIVE DUCTAL BREAST CARCINOMA
  14. HERCEPTIN [Suspect]
     Active Substance: TRASTUZUMAB
     Indication: INTRADUCTAL PROLIFERATIVE BREAST LESION
     Dosage: FOUR COURSES
     Route: 058
     Dates: start: 20161013, end: 201612
  15. HERCEPTIN [Suspect]
     Active Substance: TRASTUZUMAB
     Indication: EGFR GENE OVEREXPRESSION

REACTIONS (8)
  - Thrombocytosis [Unknown]
  - Pericardial effusion [Recovering/Resolving]
  - Pleural effusion [Recovering/Resolving]
  - Neck pain [Recovering/Resolving]
  - Flank pain [Recovering/Resolving]
  - Pyrexia [Recovered/Resolved]
  - Neutrophil count increased [Unknown]
  - Pericarditis [Recovered/Resolved]

NARRATIVE: CASE EVENT DATE: 201707
